FAERS Safety Report 15207515 (Version 3)
Quarter: 2018Q4

REPORT INFORMATION
  Report Type: Report from Study
  Country: US (occurrence: US)
  Receive Date: 20180727
  Receipt Date: 20181120
  Transmission Date: 20190204
  Serious: No
  Sender: FDA-Public Use
  Company Number: US-SA-2018SA125737

PATIENT
  Age: 22 Year
  Sex: Female

DRUGS (3)
  1. DUPILUMAB [Suspect]
     Active Substance: DUPILUMAB
     Dosage: 300 MG, QOW
     Route: 058
     Dates: start: 20171206, end: 2018
  2. DUPILUMAB [Suspect]
     Active Substance: DUPILUMAB
     Indication: DERMATITIS ATOPIC
     Dosage: 600 MG, 1X
     Route: 058
     Dates: start: 2017, end: 2017
  3. ADDERALL [Suspect]
     Active Substance: AMPHETAMINE ASPARTATE\AMPHETAMINE SULFATE\DEXTROAMPHETAMINE SACCHARATE\DEXTROAMPHETAMINE SULFATE

REACTIONS (10)
  - Injection site pruritus [Unknown]
  - Unevaluable event [Unknown]
  - Product dose omission [Unknown]
  - Blood pressure increased [Unknown]
  - Tachycardia [Unknown]
  - Fatigue [Recovering/Resolving]
  - CYP2D6 gene status assay [Unknown]
  - Therapeutic response decreased [Unknown]
  - Injection site erythema [Unknown]
  - Decreased activity [Unknown]

NARRATIVE: CASE EVENT DATE: 20180425
